FAERS Safety Report 11317340 (Version 1)
Quarter: 2015Q3

REPORT INFORMATION
  Report Type: Other
  Country: DK (occurrence: TR)
  Receive Date: 20150728
  Receipt Date: 20150728
  Transmission Date: 20151125
  Serious: Yes (Other)
  Sender: FDA-Public Use
  Company Number: TR-FRI-1000078558

PATIENT
  Age: 70 Year
  Sex: Female

DRUGS (2)
  1. ESCITALOPRAM [Suspect]
     Active Substance: ESCITALOPRAM OXALATE
     Indication: MAJOR DEPRESSION
     Dosage: 5 MG
     Route: 065
  2. ESCITALOPRAM [Suspect]
     Active Substance: ESCITALOPRAM OXALATE
     Dosage: 10 MG
     Route: 065

REACTIONS (4)
  - Presyncope [Unknown]
  - Dizziness [Unknown]
  - Sinus bradycardia [Recovered/Resolved]
  - Hypotension [Unknown]
